FAERS Safety Report 14681051 (Version 1)
Quarter: 2018Q1

REPORT INFORMATION
  Report Type: Report from Study
  Country: IE (occurrence: IE)
  Receive Date: 20180326
  Receipt Date: 20180326
  Transmission Date: 20180509
  Serious: Yes (Hospitalization)
  Sender: FDA-Public Use
  Company Number: IE-JNJFOC-20180329581

PATIENT
  Age: 47 Year
  Sex: Female

DRUGS (7)
  1. ELTROXIN [Concomitant]
     Active Substance: LEVOTHYROXINE
     Route: 050
  2. COLECALCIFEROL [Concomitant]
     Active Substance: CHOLECALCIFEROL
     Dosage: 500000 UNITS
     Route: 050
  3. ETORICOXIB [Concomitant]
     Active Substance: ETORICOXIB
     Dosage: PRN (AS REQUIRED)
     Route: 050
  4. EVENING PRIMROSE  OIL [Concomitant]
     Active Substance: EVENING PRIMROSE OIL\HERBALS
     Route: 050
  5. STELARA [Suspect]
     Active Substance: USTEKINUMAB
     Indication: PSORIASIS
     Route: 058
     Dates: start: 20170906
  6. LANSOPRAZOLE. [Concomitant]
     Active Substance: LANSOPRAZOLE
     Dosage: PRN (AS REQUIRED)
     Route: 050
  7. KONVERGE [Concomitant]
     Active Substance: AMLODIPINE BESYLATE\OLMESARTAN MEDOXOMIL
     Route: 050

REACTIONS (1)
  - Sepsis [Not Recovered/Not Resolved]

NARRATIVE: CASE EVENT DATE: 201803
